FAERS Safety Report 26048702 (Version 3)
Quarter: 2025Q4

REPORT INFORMATION
  Report Type: Report from Study
  Country: EU (occurrence: EU)
  Receive Date: 20251115
  Receipt Date: 20251120
  Transmission Date: 20260117
  Serious: Yes (Death, Hospitalization)
  Sender: ABBVIE
  Company Number: EU-ABBVIE-6549876

PATIENT
  Age: 80 Year
  Sex: Female

DRUGS (4)
  1. FOSCARBIDOPA\FOSLEVODOPA [Suspect]
     Active Substance: FOSCARBIDOPA\FOSLEVODOPA
     Indication: Parkinson^s disease
     Dosage: DURING THE DAY 0.45 ML/HOUR AND AT NIGHT 0.30 ML/HOUR.
     Route: 058
     Dates: start: 20250227
  2. RIVASTIGMINE [Concomitant]
     Active Substance: RIVASTIGMINE
     Indication: Product used for unknown indication
     Dosage: BEFORE ?DUODOPA
     Route: 062
  3. BRINTELLIX [Concomitant]
     Active Substance: VORTIOXETINE HYDROBROMIDE
     Indication: Product used for unknown indication
     Dosage: BEFORE ?DUODOPA
     Route: 048
     Dates: end: 20251109
  4. HYDROCHLOROTHIAZIDE [Concomitant]
     Active Substance: HYDROCHLOROTHIAZIDE
     Indication: Product used for unknown indication
     Dosage: BEFORE ?DUODOPA
     Route: 048
     Dates: end: 20251109

REACTIONS (2)
  - Discomfort [Fatal]
  - Pneumonia [Fatal]

NARRATIVE: CASE EVENT DATE: 20251107
